FAERS Safety Report 8007743-1 (Version None)
Quarter: 2011Q4

REPORT INFORMATION
  Report Type: 
  Country: None (occurrence: None)
  Receive Date: 20111227
  Receipt Date: 20110629
  Transmission Date: 20120403
  Serious: No
  Sender: FDA-Public Use
  Company Number: US-ABBOTT-11P-163-0836055-00

PATIENT
  Sex: Male
  Weight: 118.04 kg

DRUGS (5)
  1. LUPRON DEPOT [Suspect]
     Indication: PROSTATE CANCER
     Dates: start: 20080101, end: 20100101
  2. METFORMIN [Concomitant]
     Indication: DIABETES MELLITUS
  3. SIMAVASTATIN [Concomitant]
     Indication: BLOOD CHOLESTEROL
     Dosage: 40 MG DAILY
  4. NIFEDIAC [Concomitant]
     Indication: PRODUCT USED FOR UNKNOWN INDICATION
     Dosage: 30 MG DAILY
  5. VALTURNA [Concomitant]
     Indication: BLOOD PRESSURE

REACTIONS (3)
  - GYNAECOMASTIA [None]
  - WEIGHT INCREASED [None]
  - HOT FLUSH [None]
